FAERS Safety Report 7511166-9 (Version None)
Quarter: 2011Q2

REPORT INFORMATION
  Report Type: 
  Country: None (occurrence: None)
  Receive Date: 20110531
  Receipt Date: 20090125
  Transmission Date: 20111010
  Serious: Yes (Death, Other)
  Sender: FDA-Public Use
  Company Number: US-BAYER-200911450NA

PATIENT
  Age: 80 Year
  Sex: Male
  Weight: 77 kg

DRUGS (35)
  1. CEFAZOLIN [Concomitant]
     Dosage: 1 G, INJECTION
     Dates: start: 20040608
  2. CARDIOPLEGIA [Concomitant]
     Dosage: 870 ML, UNK
     Route: 042
     Dates: start: 20040608
  3. ACETAMINOPHEN [Concomitant]
     Route: 048
  4. NESIRITIDE [Concomitant]
     Dosage: 0.5 MG, INJECTION
     Dates: start: 20040608
  5. VIAGRA [Concomitant]
     Route: 048
  6. MULTI-VITAMIN [Concomitant]
     Route: 048
  7. TIAZAC [Concomitant]
     Route: 048
  8. AMIODARONE HCL [Concomitant]
     Dosage: UNK
     Route: 042
     Dates: start: 20040608
  9. NIMBEX [Concomitant]
     Dosage: 10 MG, UNK
     Route: 042
     Dates: start: 20040608
  10. DOPAMINE HCL [Concomitant]
     Dosage: UNK
     Route: 042
     Dates: start: 20040608
  11. TRASYLOL [Suspect]
     Indication: CORONARY ARTERY BYPASS
     Dosage: UNK
     Route: 042
     Dates: start: 20040607
  12. TRASYLOL [Suspect]
     Indication: CARDIAC ABLATION
  13. TOPROL-XL [Concomitant]
     Route: 048
  14. WELLBUTRIN [Concomitant]
     Route: 048
  15. FENTANYL [Concomitant]
     Dosage: 250 MCG INJECTION
     Dates: start: 20040608
  16. VERSED [Concomitant]
     Dosage: 5 MG, UNK
     Route: 042
     Dates: start: 20040608
  17. ZOCOR [Concomitant]
     Route: 048
  18. AMICAR [Concomitant]
     Dosage: 3.4 ML, UNK
     Route: 042
     Dates: start: 20040608
  19. PROTAMINE SULFATE [Concomitant]
     Dosage: 250 MG, UNK
     Route: 042
     Dates: start: 20040608
  20. TRASYLOL [Suspect]
     Indication: MITRAL VALVE REPAIR
  21. MOTRIN [Concomitant]
     Route: 048
  22. ACETYLSALICYLIC ACID SRT [Concomitant]
     Route: 048
  23. MIDAZOLAM HCL [Concomitant]
     Dosage: 5MG/1ML INJECTION
     Dates: start: 20040608
  24. MUPIROCIN [Concomitant]
     Dosage: UNK
     Route: 045
     Dates: start: 20040608
  25. FLONASE [Concomitant]
     Dosage: INHALATION
     Route: 055
  26. PEPCID [Concomitant]
     Dosage: 20 MG, UNK
     Route: 042
     Dates: start: 20040608
  27. ATIVAN [Concomitant]
     Dosage: 0.5 MG, UNK
     Route: 048
     Dates: start: 20040608
  28. ALBUMIN (HUMAN) [Concomitant]
     Dosage: 250 M INJECTION
     Dates: start: 20040608
  29. ACETYLCYSTEINE [Concomitant]
     Dosage: 800 MG/4 ML
     Dates: start: 20040608
  30. INSULIN [Concomitant]
     Dosage: 5 U, UNK
     Route: 042
     Dates: start: 20040608
  31. LASIX [Concomitant]
     Dosage: 30 MG, UNK
     Route: 042
     Dates: start: 20040608
  32. BLOOD AND RELATED PRODUCTS [Concomitant]
     Dosage: 2 U, UNK
     Route: 042
     Dates: start: 20040608
  33. MORPHINE SULFATE [Concomitant]
     Dosage: 6 MG (TOTAL) INJECTION
     Dates: start: 20040608
  34. SODIUM BICARBONATE [Concomitant]
     Dosage: 50 ML, UNK
     Dates: start: 20040608
  35. BENADRYL [Concomitant]
     Dosage: 17.5 MG, UNK
     Route: 042
     Dates: start: 20040608

REACTIONS (14)
  - RENAL FAILURE [None]
  - PAIN [None]
  - ANXIETY [None]
  - STRESS [None]
  - RENAL IMPAIRMENT [None]
  - UNEVALUABLE EVENT [None]
  - OESOPHAGEAL DISORDER [None]
  - INJURY [None]
  - MULTI-ORGAN FAILURE [None]
  - RENAL INJURY [None]
  - EMOTIONAL DISTRESS [None]
  - ANHEDONIA [None]
  - DEATH [None]
  - FEAR [None]
